FAERS Safety Report 5403756-4 (Version None)
Quarter: 2007Q3

REPORT INFORMATION
  Report Type: 
  Country: None (occurrence: None)
  Receive Date: 20070802
  Receipt Date: 20070731
  Transmission Date: 20080115
  Serious: Yes (Other)
  Sender: FDA-Public Use
  Company Number: US-RB-005731-07

PATIENT
  Sex: Female

DRUGS (2)
  1. SUBUTEX [Suspect]
     Indication: NECK PAIN
     Route: 060
  2. SUBUTEX [Suspect]
     Route: 060
     Dates: start: 20070501

REACTIONS (3)
  - SCOTOMA [None]
  - VITREOUS DEGENERATION [None]
  - VITREOUS DETACHMENT [None]
